FAERS Safety Report 19308490 (Version 1)
Quarter: 2021Q2

REPORT INFORMATION
  Report Type: Spontaneous
  Country: US (occurrence: US)
  Receive Date: 20210526
  Receipt Date: 20210526
  Transmission Date: 20210717
  Serious: No
  Sender: FDA-Public Use
  Company Number: None

PATIENT
  Sex: Female

DRUGS (2)
  1. NON?PRESERVATIVE TEARS [UNSPECIFIED INGREDIENT] [Suspect]
     Active Substance: UNSPECIFIED INGREDIENT
  2. FLUOROMETHOLONE. [Suspect]
     Active Substance: FLUOROMETHOLONE

REACTIONS (1)
  - Treatment failure [None]
